FAERS Safety Report 8571543-4 (Version None)
Quarter: 2012Q3

REPORT INFORMATION
  Report Type: 
  Country: None (occurrence: None)
  Receive Date: 20120806
  Receipt Date: 20120730
  Transmission Date: 20120928
  Serious: Yes (Other)
  Sender: FDA-Public Use
  Company Number: PHHY2012EC067072

PATIENT
  Sex: Male

DRUGS (1)
  1. EXELON [Suspect]
     Indication: DEMENTIA ALZHEIMER'S TYPE
     Dosage: 2 DF, DAILY
     Route: 048
     Dates: start: 20110101

REACTIONS (6)
  - DIABETES MELLITUS [None]
  - PYREXIA [None]
  - HEADACHE [None]
  - HYPERTENSION [None]
  - TREMOR [None]
  - VIRAL INFECTION [None]
